FAERS Safety Report 21778409 (Version 1)
Quarter: 2022Q4

REPORT INFORMATION
  Report Type: Spontaneous
  Country: US (occurrence: US)
  Receive Date: 20221226
  Receipt Date: 20221226
  Transmission Date: 20230113
  Serious: No
  Sender: FDA-Public Use
  Company Number: US-MIGRATION_PFIZER-2022BHV003081

PATIENT
  Age: 44 Year
  Sex: Female
  Weight: 70.824 kg

DRUGS (3)
  1. NURTEC ODT [Suspect]
     Active Substance: RIMEGEPANT SULFATE
     Indication: Migraine
     Dosage: 1 ODT
     Route: 048
  2. ASCORBIC ACID\IRON [Suspect]
     Active Substance: ASCORBIC ACID\IRON
     Indication: Product used for unknown indication
     Route: 065
  3. INSULIN NOS [Suspect]
     Active Substance: INSULIN NOS
     Indication: Product used for unknown indication
     Route: 065

REACTIONS (1)
  - Abdominal pain [Unknown]
